FAERS Safety Report 4517913-2 (Version None)
Quarter: 2004Q4

REPORT INFORMATION
  Report Type: 
  Country: None (occurrence: None)
  Receive Date: 20041201
  Receipt Date: 20041201
  Transmission Date: 20050328
  Serious: Yes (Life-Threatening, Hospitalization)
  Sender: FDA-Public Use
  Company Number: None

PATIENT
  Age: 57 Year
  Sex: Female
  Weight: 58.9676 kg

DRUGS (2)
  1. SINEMET CR [Suspect]
     Indication: PARKINSON'S DISEASE
     Dosage: PO BID
     Route: 048
     Dates: start: 19930101
  2. ELDEPRYL [Suspect]
     Indication: PARKINSON'S DISEASE
     Dosage: PO 2 QD
     Route: 048
     Dates: start: 19930101

REACTIONS (3)
  - CONVULSION [None]
  - PHARMACEUTICAL PRODUCT COMPLAINT [None]
  - SYNCOPE [None]
